FAERS Safety Report 18218671 (Version 1)
Quarter: 2020Q3

REPORT INFORMATION
  Report Type: Spontaneous
  Country: US (occurrence: US)
  Receive Date: 20200901
  Receipt Date: 20200901
  Transmission Date: 20201103
  Serious: Yes (Hospitalization)
  Sender: FDA-Public Use
  Company Number: None

PATIENT
  Sex: Male
  Weight: 93.8 kg

DRUGS (2)
  1. GEMCITABINE HYDROCHLORIDE. [Suspect]
     Active Substance: GEMCITABINE HYDROCHLORIDE
     Dates: end: 20200811
  2. CISPLATIN (119875) [Suspect]
     Active Substance: CISPLATIN
     Dates: end: 20200811

REACTIONS (4)
  - Pyrexia [None]
  - Immune thrombocytopenia [None]
  - Hyperbilirubinaemia [None]
  - Abdominal pain [None]

NARRATIVE: CASE EVENT DATE: 20200818
